FAERS Safety Report 24338030 (Version 1)
Quarter: 2024Q3

REPORT INFORMATION
  Report Type: Spontaneous
  Country: US (occurrence: US)
  Receive Date: 20240919
  Receipt Date: 20240919
  Transmission Date: 20241017
  Serious: Yes (Death)
  Sender: RANBAXY
  Company Number: US-SUN PHARMACEUTICAL INDUSTRIES LTD-2024R1-468343

PATIENT
  Age: 75 Year
  Sex: Female

DRUGS (3)
  1. CARBIDOPA AND LEVODOPA [Suspect]
     Active Substance: CARBIDOPA\LEVODOPA
     Indication: Parkinson^s disease
     Dosage: UNK (25/100 2 QID)
     Route: 065
  2. LORAZEPAM [Suspect]
     Active Substance: LORAZEPAM
     Indication: Parkinson^s disease
     Dosage: 0.5 MILLIGRAM, Q6H
     Route: 065
  3. MORPHINE [Suspect]
     Active Substance: MORPHINE
     Indication: Parkinson^s disease
     Dosage: 7.5 MILLIGRAM, Q6H
     Route: 065

REACTIONS (1)
  - Condition aggravated [Fatal]
